FAERS Safety Report 6301669-7 (Version None)
Quarter: 2009Q3

REPORT INFORMATION
  Report Type: 
  Country: None (occurrence: None)
  Receive Date: 20090807
  Receipt Date: 20090728
  Transmission Date: 20100115
  Serious: Yes (Other)
  Sender: FDA-Public Use
  Company Number: PHHY2009US31874

PATIENT
  Age: 69 Year
  Sex: Male

DRUGS (5)
  1. INTERLEUKIN-2 [Suspect]
     Indication: METASTATIC RENAL CELL CARCINOMA
     Dosage: 18 X10^6 IU/M^2 CONTINUOUS INFUSION FOR 120 HOURS, DAYS 1 AND 14, AND THREE MAINTENANCE CYCLE WEEKS
  2. INTERFERON ALFA-2A [Suspect]
     Indication: METASTATIC RENAL CELL CARCINOMA
     Dosage: 6 MIU EVERY OTHER DAY
     Route: 058
  3. VACCINES [Concomitant]
     Indication: METASTATIC RENAL CELL CARCINOMA
     Dosage: 1 ? 10^7 CELLS/1 ML LACTATED RINGER'S SOLUTION
  4. SORAFENIB [Concomitant]
     Indication: METASTATIC RENAL CELL CARCINOMA
  5. TEMSIROLIMUS [Concomitant]
     Indication: METASTATIC RENAL CELL CARCINOMA

REACTIONS (2)
  - METABOLIC DISORDER [None]
  - PRURITUS [None]
